FAERS Safety Report 15822179 (Version 1)
Quarter: 2018Q4

REPORT INFORMATION
  Report Type: Spontaneous
  Country: US (occurrence: US)
  Receive Date: 20181217
  Receipt Date: 20181217
  Transmission Date: 20190205
  Serious: No
  Sender: FDA-Public Use
  Company Number: None

PATIENT
  Age: 56 Year
  Sex: Female
  Weight: 63.5 kg

DRUGS (23)
  1. ALBUTEROL. [Concomitant]
     Active Substance: ALBUTEROL
  2. TRAZODONE [Concomitant]
     Active Substance: TRAZODONE HYDROCHLORIDE
  3. ANESTRON [Concomitant]
  4. ZOFRAN [Concomitant]
     Active Substance: ONDANSETRON HYDROCHLORIDE
  5. VITAMIN D3 [Concomitant]
     Active Substance: CHOLECALCIFEROL
  6. B2 [Concomitant]
  7. VENLAFAXINE HCL [Concomitant]
     Active Substance: VENLAFAXINE HYDROCHLORIDE
  8. VITAMIN C [Concomitant]
     Active Substance: ASCORBIC ACID
  9. ONDANSETRON [Concomitant]
     Active Substance: ONDANSETRON
  10. HEMP [Concomitant]
     Active Substance: HEMP
  11. VIT B W/FOLIC ACID [Concomitant]
  12. MEMANTIVE [Concomitant]
  13. COQ10 [Concomitant]
     Active Substance: UBIDECARENONE
  14. MAGNESIUM OXIDE. [Concomitant]
     Active Substance: MAGNESIUM OXIDE
  15. PROCLORPERAZINE [Concomitant]
  16. RIBOFLAVIN [Concomitant]
     Active Substance: RIBOFLAVIN
  17. BIOTEN [Concomitant]
  18. ATORVASTATIN TAB [Suspect]
     Active Substance: ATORVASTATIN
     Indication: LOW DENSITY LIPOPROTEIN INCREASED
     Dosage: ?          QUANTITY:20 MG MILLIGRAM(S);OTHER FREQUENCY:NIGHTLY 1XDAY;?
     Route: 048
     Dates: start: 2018
  19. BOSWELLIA [Concomitant]
     Active Substance: DIETARY SUPPLEMENT\HERBALS
  20. SUMATRIPTAN. [Concomitant]
     Active Substance: SUMATRIPTAN
  21. MONTELUKAST [Concomitant]
     Active Substance: MONTELUKAST SODIUM
  22. BOTOX [Concomitant]
     Active Substance: ONABOTULINUMTOXINA
  23. NASAL SALINE [Concomitant]
     Active Substance: SODIUM CHLORIDE

REACTIONS (5)
  - Pain in extremity [None]
  - Trichorrhexis [None]
  - Hair texture abnormal [None]
  - Headache [None]
  - Musculoskeletal stiffness [None]

NARRATIVE: CASE EVENT DATE: 2018
